FAERS Safety Report 15987171 (Version 4)
Quarter: 2019Q2

REPORT INFORMATION
  Report Type: Spontaneous
  Country: US (occurrence: US)
  Receive Date: 20190220
  Receipt Date: 20190611
  Transmission Date: 20190711
  Serious: Yes (Death, Other)
  Sender: FDA-Public Use
  Company Number: US-PFIZER INC-2019076664

PATIENT
  Age: 59 Year
  Sex: Female
  Weight: 56.69 kg

DRUGS (7)
  1. NEXIUM [Suspect]
     Active Substance: ESOMEPRAZOLE MAGNESIUM
     Dosage: 40 MG, DAILY
  2. PROTONIX [Suspect]
     Active Substance: PANTOPRAZOLE SODIUM
     Indication: GASTRITIS
     Dosage: 40 MG, DAILY
     Route: 042
     Dates: start: 20140122, end: 20140204
  3. PRILOSEC [Suspect]
     Active Substance: OMEPRAZOLE MAGNESIUM
     Dosage: 40 MG, DAILY
  4. PANTOPRAZOLE [Suspect]
     Active Substance: PANTOPRAZOLE
     Indication: GASTRITIS
     Dosage: 40 MG, DAILY
     Dates: start: 20140111, end: 20140211
  5. PREVACID [Suspect]
     Active Substance: LANSOPRAZOLE
     Dosage: 40 MG, DAILY
  6. PROTONIX [Suspect]
     Active Substance: PANTOPRAZOLE SODIUM
     Indication: GASTRITIS
     Dosage: 40 MG, DAILY
     Dates: start: 20110325, end: 20110328
  7. PRILOSEC OTC [Suspect]
     Active Substance: OMEPRAZOLE MAGNESIUM
     Dosage: 20 MG, DAILY

REACTIONS (3)
  - Pneumonia viral [Fatal]
  - Respiratory failure [Fatal]
  - Acute kidney injury [Unknown]

NARRATIVE: CASE EVENT DATE: 20140116
